FAERS Safety Report 8808666 (Version 2)
Quarter: 2012Q4

REPORT INFORMATION
  Report Type: Spontaneous
  Country: US (occurrence: None)
  Receive Date: 20120919
  Receipt Date: 20121005
  Transmission Date: 20130627
  Serious: Yes (Other)
  Sender: FDA-Public Use
  Company Number: AUR-APL-2012-03983

PATIENT
  Sex: Female
  Weight: 109 kg

DRUGS (10)
  1. CLOPIDOGREL [Suspect]
     Indication: ANTICOAGULANT THERAPY
     Dosage: ONE PER DAY.
  2. NORVASC (AMLODIPINE BESILATE) [Concomitant]
  3. PLAVIX (CLOPIDOGREL) [Concomitant]
  4. ASA (ACETYLSALICYLIC ACID) [Concomitant]
  5. LOPRESSOR (METOPROLOL TARTRATE) [Concomitant]
  6. CRESTOR (ROSUVASTATIN) [Concomitant]
  7. INSULIN (INSULIN) [Concomitant]
  8. NEXIUM (ESOMEPRAZOLE MAGNESIUM) [Concomitant]
  9. CALCIUM CARBONATE (CALCIUM CARBONATE) [Concomitant]
  10. DIOVAN (VALSARTAN) [Concomitant]

REACTIONS (1)
  - Thrombosis in device [None]
